FAERS Safety Report 4404338-3 (Version None)
Quarter: 2004Q3

REPORT INFORMATION
  Report Type: 
  Country: None (occurrence: None)
  Receive Date: 20040721
  Receipt Date: 20040721
  Transmission Date: 20050211
  Serious: Yes (Hospitalization)
  Sender: FDA-Public Use
  Company Number: None

PATIENT

DRUGS (15)
  1. ATENOLOL [Suspect]
     Indication: HYPERTENSION
  2. METFORMIN HCL [Suspect]
     Indication: DIABETES MELLITUS
  3. GLYBURIDE [Suspect]
     Indication: DIABETES MELLITUS
  4. LORATADINE [Concomitant]
  5. GEMFIBROZIL [Concomitant]
  6. HYDROCHLOROTHIAZIDE [Concomitant]
  7. ATROVENT [Concomitant]
  8. AMITRIPTYINE [Concomitant]
  9. IRBESARTAN [Concomitant]
  10. OMEPRAZOLE [Concomitant]
  11. ASPIRIN [Concomitant]
  12. ROSIGLITAZONE MALEATE [Concomitant]
  13. SIMVASTATIN [Concomitant]
  14. ITERASC [Concomitant]
  15. DOCUSATE [Concomitant]

REACTIONS (4)
  - BRADYCARDIA [None]
  - HYPOGLYCAEMIA [None]
  - HYPOTENSION [None]
  - RENAL FAILURE ACUTE [None]
